FAERS Safety Report 5026611-0 (Version None)
Quarter: 2006Q2

REPORT INFORMATION
  Report Type: 
  Country: None (occurrence: None)
  Receive Date: 20060615
  Receipt Date: 20060426
  Transmission Date: 20061013
  Serious: Yes (Other)
  Sender: FDA-Public Use
  Company Number: US-NOVOPROD-252700

PATIENT
  Age: 62 Year
  Sex: Female
  Weight: 63 kg

DRUGS (22)
  1. PAXIL [Concomitant]
     Indication: DEPRESSION
     Route: 048
  2. NOVOLOG MIX 70/30 [Suspect]
     Indication: INSULIN-REQUIRING TYPE II DIABETES MELLITUS
     Dosage: 208 IU, QD
     Route: 058
     Dates: start: 20020101
  3. ZETIA [Concomitant]
     Indication: HYPERCHOLESTEROLAEMIA
     Route: 048
  4. TRICOR [Concomitant]
     Indication: HYPERCHOLESTEROLAEMIA
     Route: 048
  5. LIPITOR [Concomitant]
     Indication: HYPERCHOLESTEROLAEMIA
     Route: 048
  6. ATROVENT [Concomitant]
     Indication: ASTHMA
     Route: 055
  7. ADVAIR DISKUS 100/50 [Concomitant]
     Indication: ASTHMA
     Route: 055
  8. ALBUTEROL                          /00139501/ [Concomitant]
     Indication: ASTHMA
     Route: 055
  9. LOTREL                             /01289101/ [Concomitant]
     Indication: HYPERTENSION
     Route: 048
  10. ACTOS                              /01460201/ [Concomitant]
     Indication: INSULIN-REQUIRING TYPE II DIABETES MELLITUS
     Route: 048
  11. COLACE [Concomitant]
     Indication: ILL-DEFINED DISORDER
     Route: 048
  12. SYNTHROID [Concomitant]
     Indication: THYROID DISORDER
     Route: 048
  13. OSCAL                              /00108001/ [Concomitant]
     Indication: MINERAL SUPPLEMENTATION
     Route: 048
  14. GEODON                             /01487002/ [Concomitant]
     Indication: DEPRESSION
     Route: 048
  15. KLONOPIN [Concomitant]
     Indication: DEPRESSION
     Route: 048
  16. IMIPRAMINE [Concomitant]
     Indication: DEPRESSION
     Route: 048
  17. RESTASIS [Concomitant]
     Indication: SJOGREN'S SYNDROME
     Route: 031
  18. NEURONTIN [Concomitant]
     Indication: DIABETIC NEUROPATHY
     Route: 048
  19. CELEBREX [Concomitant]
     Indication: BACK PAIN
     Route: 048
  20. EVOXAC [Concomitant]
     Indication: SJOGREN'S SYNDROME
     Route: 048
  21. NEXIUM [Concomitant]
     Indication: GASTROINTESTINAL DISORDER
     Route: 048
  22. ACTONEL [Concomitant]
     Indication: OSTEOPOROSIS
     Route: 048
     Dates: end: 20060101

REACTIONS (4)
  - BACK PAIN [None]
  - BLOOD GLUCOSE INCREASED [None]
  - DYSURIA [None]
  - PAIN IN EXTREMITY [None]
